FAERS Safety Report 11746210 (Version 2)
Quarter: 2015Q4

REPORT INFORMATION
  Report Type: Report from Study
  Country: US (occurrence: US)
  Receive Date: 20151117
  Receipt Date: 20151204
  Transmission Date: 20160304
  Serious: Yes (Other)
  Sender: FDA-Public Use
  Company Number: US-ROCHE-1662012

PATIENT
  Age: 15 Year
  Sex: Male

DRUGS (5)
  1. DICLOFENAC SODIUM. [Concomitant]
     Active Substance: DICLOFENAC SODIUM
  2. ACETAMINOPHEN AND CODEINE [Concomitant]
     Active Substance: ACETAMINOPHEN\CODEINE PHOSPHATE
  3. NUTROPIN AQ [Suspect]
     Active Substance: SOMATROPIN
     Indication: GROWTH HORMONE DEFICIENCY
     Route: 058
     Dates: start: 20151107
  4. FISH OIL [Concomitant]
     Active Substance: FISH OIL
  5. LORATADINE. [Concomitant]
     Active Substance: LORATADINE

REACTIONS (3)
  - Hand fracture [Recovering/Resolving]
  - Fatigue [Unknown]
  - Hunger [Unknown]

NARRATIVE: CASE EVENT DATE: 20151111
